FAERS Safety Report 7236478-8 (Version None)
Quarter: 2011Q1

REPORT INFORMATION
  Report Type: 
  Country: None (occurrence: None)
  Receive Date: 20110120
  Receipt Date: 20110118
  Transmission Date: 20110831
  Serious: Yes (Death, Hospitalization)
  Sender: FDA-Public Use
  Company Number: GB-MEDIMMUNE-MEDI-0012279

PATIENT
  Sex: Male

DRUGS (1)
  1. SYNAGIS [Suspect]

REACTIONS (1)
  - CHARGE SYNDROME [None]
